FAERS Safety Report 7026436-0 (Version None)
Quarter: 2010Q4

REPORT INFORMATION
  Report Type: 
  Country: None (occurrence: None)
  Receive Date: 20101004
  Receipt Date: 20100930
  Transmission Date: 20110411
  Serious: Yes (Life-Threatening, Hospitalization, Other)
  Sender: FDA-Public Use
  Company Number: PHFR2010GB01195

PATIENT
  Sex: Male
  Weight: 105 kg

DRUGS (6)
  1. CLOZARIL [Suspect]
     Indication: SCHIZOPHRENIA
     Dosage: 200 MG AT NIGHT
     Route: 048
     Dates: start: 20041012
  2. CLOZARIL [Suspect]
     Dosage: UNK
     Route: 048
     Dates: start: 20100706
  3. CLOZARIL [Suspect]
     Dosage: 300 MG/DAY
     Route: 048
     Dates: start: 20100712
  4. PROCYCLIDINE HYDROCHLORIDE 2MG TAB [Concomitant]
     Dosage: 15 MG, UNK
     Route: 048
     Dates: start: 20100704
  5. HYOSCINE HBR HYT [Concomitant]
     Dosage: 900 MCG, UNK
     Route: 048
     Dates: start: 20100704
  6. SIMVASTATIN [Concomitant]
     Dosage: 40 MG, UNK
     Dates: start: 20100704

REACTIONS (6)
  - BLOOD CREATINE PHOSPHOKINASE INCREASED [None]
  - FEELING ABNORMAL [None]
  - INFECTION [None]
  - INFLUENZA LIKE ILLNESS [None]
  - SCHIZOPHRENIA [None]
  - SEDATION [None]
